FAERS Safety Report 8027066-4 (Version None)
Quarter: 2012Q1

REPORT INFORMATION
  Report Type: 
  Country: None (occurrence: None)
  Receive Date: 20120103
  Receipt Date: 20111219
  Transmission Date: 20120608
  Serious: Yes (Hospitalization)
  Sender: FDA-Public Use
  Company Number: 2011MA017952

PATIENT
  Age: 55 Year
  Sex: Male

DRUGS (8)
  1. RAMIPRIL [Concomitant]
  2. TIOTROPIUM [Concomitant]
  3. RAMIPRIL [Suspect]
     Indication: HYPERTENSION
     Dosage: 5 MG;QD
  4. TERBUTALINE [Concomitant]
  5. BUDESONIDE [Concomitant]
  6. BENDROFLUAZIDE [Concomitant]
  7. ALBUTEROL SULFATE AUTOHALER [Concomitant]
  8. SYMBICORT [Concomitant]

REACTIONS (7)
  - STRESS [None]
  - HERPES ZOSTER [None]
  - PRODUCT QUALITY ISSUE [None]
  - MALAISE [None]
  - AXILLARY PAIN [None]
  - INSOMNIA [None]
  - NON-CARDIAC CHEST PAIN [None]
